FAERS Safety Report 19502215 (Version 2)
Quarter: 2021Q3

REPORT INFORMATION
  Report Type: Spontaneous
  Country: US (occurrence: US)
  Receive Date: 20210707
  Receipt Date: 20210713
  Transmission Date: 20211014
  Serious: No
  Sender: FDA-Public Use
  Company Number: US-BAYER-2021-170800

PATIENT
  Age: 80 Year
  Sex: Female

DRUGS (2)
  1. MIRALAX [Suspect]
     Active Substance: POLYETHYLENE GLYCOL 3350
     Indication: GASTROINTESTINAL DISORDER
     Dosage: UNK
     Route: 048
     Dates: start: 20210705, end: 20210706
  2. MIRALAX [Suspect]
     Active Substance: POLYETHYLENE GLYCOL 3350
     Indication: COLONOSCOPY

REACTIONS (6)
  - Product use in unapproved indication [Recovered/Resolved]
  - Dyspnoea [Recovered/Resolved with Sequelae]
  - Nasal congestion [Recovered/Resolved]
  - Chills [Recovered/Resolved]
  - Feeling abnormal [Recovered/Resolved]
  - Rhinorrhoea [Recovered/Resolved]

NARRATIVE: CASE EVENT DATE: 202107
